FAERS Safety Report 18887809 (Version 4)
Quarter: 2021Q1

REPORT INFORMATION
  Report Type: Spontaneous
  Country: JP (occurrence: JP)
  Receive Date: 20210212
  Receipt Date: 20210310
  Transmission Date: 20210420
  Serious: Yes (Death, Life-Threatening, Other)
  Sender: FDA-Public Use
  Company Number: US-MSD-1207USA010227

PATIENT
  Age: 69 Year
  Sex: Male
  Weight: 60 kg

DRUGS (17)
  1. XELODA [Suspect]
     Active Substance: CAPECITABINE
     Indication: RECTAL CANCER METASTATIC
     Dosage: 3000 MILLIGRAM, QD
     Route: 048
     Dates: start: 20120112, end: 20120125
  2. XELODA [Suspect]
     Active Substance: CAPECITABINE
     Dosage: 3000 MILLIGRAM, QD
     Route: 048
     Dates: start: 20120420, end: 20120429
  3. ELPLAT [Suspect]
     Active Substance: OXALIPLATIN
     Indication: RECTAL CANCER METASTATIC
     Dosage: 200 MILLIGRAM, QD
     Route: 041
     Dates: start: 20120112, end: 20120112
  4. NAIXAN [Concomitant]
     Active Substance: NAPROXEN SODIUM
     Dosage: DOSAGE IS UNCERTAIN.
     Route: 048
  5. XELODA [Suspect]
     Active Substance: CAPECITABINE
     Dosage: 3000 MILLIGRAM, QD
     Route: 048
     Dates: start: 20120330, end: 20120412
  6. NICORANDIL [Suspect]
     Active Substance: NICORANDIL
     Indication: ANGINA PECTORIS
     Dosage: DOSAGE IS UNCERTAIN.
     Route: 048
     Dates: end: 20120430
  7. REZALTAS [Suspect]
     Active Substance: AZELNIDIPINE\OLMESARTAN MEDOXOMIL
     Indication: HYPERTENSION
     Dosage: DOSAGE IS UNCERTAIN.
     Route: 048
     Dates: end: 20120430
  8. JANUVIA [Suspect]
     Active Substance: SITAGLIPTIN PHOSPHATE
     Indication: DIABETES MELLITUS
     Dosage: DOSAGE IS UNCERTAIN.
     Route: 048
     Dates: end: 20120430
  9. NATRIX [Suspect]
     Active Substance: INDAPAMIDE
     Indication: HYPERTENSION
     Dosage: DOSAGE IS UNCERTAIN.
     Route: 048
     Dates: end: 20120430
  10. MUCOSTA [Concomitant]
     Active Substance: REBAMIPIDE
     Dosage: DOSAGE IS UNCERTAIN.
     Route: 048
  11. ELPLAT [Suspect]
     Active Substance: OXALIPLATIN
     Dosage: 200 MILLIGRAM, QD
     Route: 041
     Dates: start: 20120330, end: 20120330
  12. ELPLAT [Suspect]
     Active Substance: OXALIPLATIN
     Dosage: 200 MILLIGRAM, QD
     Route: 041
     Dates: start: 20120420, end: 20120420
  13. TAKEPRON [Suspect]
     Active Substance: LANSOPRAZOLE
     Indication: PRODUCT USED FOR UNKNOWN INDICATION
     Dosage: DOSAGE IS UNCERTAIN.
     Route: 048
     Dates: end: 20120430
  14. XELODA [Suspect]
     Active Substance: CAPECITABINE
     Dosage: 3000 MILLIGRAM, QD
     Route: 048
     Dates: start: 20120203, end: 20120216
  15. HARNAL [Concomitant]
     Active Substance: TAMSULOSIN HYDROCHLORIDE
     Indication: BENIGN PROSTATIC HYPERPLASIA
     Dosage: DOSAGE IS UNCERTAIN.
     Route: 048
  16. ELPLAT [Suspect]
     Active Substance: OXALIPLATIN
     Dosage: 200 MILLIGRAM, QD
     Route: 041
     Dates: start: 20120203, end: 20120203
  17. AMARYL [Suspect]
     Active Substance: GLIMEPIRIDE
     Indication: DIABETES MELLITUS
     Dosage: DOSAGE IS UNCERTAIN.
     Route: 048
     Dates: end: 20120430

REACTIONS (6)
  - Pancytopenia [Fatal]
  - Lymphangiosis carcinomatosa [Fatal]
  - Acute hepatic failure [Fatal]
  - Drug-induced liver injury [Fatal]
  - Disseminated intravascular coagulation [Fatal]
  - Hepatic encephalopathy [Fatal]

NARRATIVE: CASE EVENT DATE: 20120430
